FAERS Safety Report 5919500-8 (Version None)
Quarter: 2008Q4

REPORT INFORMATION
  Report Type: 
  Country: None (occurrence: None)
  Receive Date: 20081014
  Receipt Date: 20081014
  Transmission Date: 20090506
  Serious: Yes (Hospitalization, Other)
  Sender: FDA-Public Use
  Company Number: None

PATIENT
  Age: 3 Year
  Sex: Female
  Weight: 17.2367 kg

DRUGS (4)
  1. CEFDINIR [Suspect]
     Indication: EAR INFECTION
     Dosage: 1 TEASPOON DAILY PO
     Route: 048
     Dates: start: 20081002, end: 20081008
  2. CEFDINIR [Suspect]
     Indication: UPPER RESPIRATORY TRACT INFECTION
     Dosage: 1 TEASPOON DAILY PO
     Route: 048
     Dates: start: 20081002, end: 20081008
  3. CEFDINIR [Suspect]
     Indication: EAR INFECTION
     Dosage: 1 TEASPOON DAILY PO
     Route: 048
     Dates: start: 20080224
  4. CEFDINIR [Suspect]
     Indication: UPPER RESPIRATORY TRACT INFECTION
     Dosage: 1 TEASPOON DAILY PO
     Route: 048
     Dates: start: 20080224

REACTIONS (7)
  - ABDOMINAL DISTENSION [None]
  - DIARRHOEA [None]
  - FLATULENCE [None]
  - PAIN [None]
  - PRODUCT QUALITY ISSUE [None]
  - SCREAMING [None]
  - VOMITING [None]
